FAERS Safety Report 9054788 (Version 2)
Quarter: 2013Q1

REPORT INFORMATION
  Report Type: Report from Study
  Country: US (occurrence: US)
  Receive Date: 20130208
  Receipt Date: 20130318
  Transmission Date: 20140127
  Serious: Yes (Hospitalization)
  Sender: FDA-Public Use
  Company Number: US-ABBOTT-13P-163-1043954-00

PATIENT
  Age: 30 None
  Sex: Female
  Weight: 93.98 kg

DRUGS (1)
  1. HUMIRA [Suspect]
     Indication: CROHN^S DISEASE
     Route: 058
     Dates: start: 201106

REACTIONS (13)
  - Inflammation [Unknown]
  - Crohn^s disease [Unknown]
  - Abdominal pain [Unknown]
  - Injection site pain [Not Recovered/Not Resolved]
  - Injection site pain [Not Recovered/Not Resolved]
  - Injection site pain [Recovered/Resolved]
  - Injection site oedema [Recovered/Resolved]
  - Injection site oedema [Recovered/Resolved]
  - Anxiety [Unknown]
  - Paranoia [Unknown]
  - Injection site pain [Not Recovered/Not Resolved]
  - Injection site pain [Unknown]
  - Incorrect dose administered [Recovered/Resolved]
